FAERS Safety Report 5243725-0 (Version None)
Quarter: 2007Q1

REPORT INFORMATION
  Report Type: 
  Country: None (occurrence: None)
  Receive Date: 20070222
  Receipt Date: 20070208
  Transmission Date: 20070707
  Serious: Yes (Other)
  Sender: FDA-Public Use
  Company Number: PHFR2007GB00739

PATIENT
  Age: 26 Year
  Sex: Female

DRUGS (3)
  1. DESFERAL [Suspect]
     Indication: THALASSAEMIA
     Route: 065
  2. DESFERAL [Suspect]
     Dosage: 4 G, QD
     Dates: start: 20061001
  3. EXJADE [Suspect]
     Indication: THALASSAEMIA
     Dosage: UNK, UNK
     Route: 065
     Dates: end: 20061001

REACTIONS (2)
  - EJECTION FRACTION DECREASED [None]
  - NUCLEAR MAGNETIC RESONANCE IMAGING ABNORMAL [None]
